FAERS Safety Report 9611937 (Version 1)
Quarter: 2013Q4

REPORT INFORMATION
  Report Type: Spontaneous
  Country: FR (occurrence: FR)
  Receive Date: 20131010
  Receipt Date: 20131010
  Transmission Date: 20140711
  Serious: Yes (Other)
  Sender: FDA-Public Use
  Company Number: FR-ABBVIE-13P-056-1156061-00

PATIENT
  Age: 4 Year
  Sex: Male

DRUGS (3)
  1. DEPAKINE [Suspect]
     Indication: PRODUCT USED FOR UNKNOWN INDICATION
     Route: 048
  2. ARTANE [Suspect]
     Indication: PRODUCT USED FOR UNKNOWN INDICATION
     Dosage: ORAL DROPS
     Route: 048
     Dates: start: 20130726, end: 20130726
  3. ARTANE [Suspect]
     Route: 048
     Dates: start: 20130726, end: 20130726

REACTIONS (4)
  - Medication error [Recovered/Resolved]
  - Incorrect dose administered [Recovered/Resolved]
  - Device use error [Recovered/Resolved]
  - Tachycardia [Recovered/Resolved]
